FAERS Safety Report 4358173-5 (Version None)
Quarter: 2004Q2

REPORT INFORMATION
  Report Type: 
  Country: None (occurrence: None)
  Receive Date: 20040510
  Receipt Date: 20040504
  Transmission Date: 20050107
  Serious: Yes (Death, Hospitalization)
  Sender: FDA-Public Use
  Company Number: US-JNJFOC-20040304257

PATIENT
  Age: 70 Year
  Sex: Female
  Weight: 33.5662 kg

DRUGS (8)
  1. DURAGESIC [Suspect]
     Indication: PAIN
     Dosage: 150 UG/HR, 1 IN 72 HOUR, TRANSDERMAL
     Route: 062
     Dates: start: 20030301, end: 20040123
  2. RISPERDAL [Concomitant]
  3. MORPHINE SULFATE [Concomitant]
  4. CARAFATE [Concomitant]
  5. MIACALCIN (CALCITONIN, SALMON) SPRAY [Concomitant]
  6. LIPITOR [Concomitant]
  7. PREDISONE (PROCAINAMIDE HYDROCHLORIDE) [Concomitant]
  8. SENEKOT (SENNA FRUIT) [Concomitant]

REACTIONS (5)
  - ANAEMIA [None]
  - BONE PAIN [None]
  - CACHEXIA [None]
  - CHRONIC OBSTRUCTIVE AIRWAYS DISEASE [None]
  - DIABETES MELLITUS NON-INSULIN-DEPENDENT [None]
